FAERS Safety Report 18093696 (Version 1)
Quarter: 2020Q3

REPORT INFORMATION
  Report Type: Spontaneous
  Country: CA (occurrence: CA)
  Receive Date: 20200730
  Receipt Date: 20200730
  Transmission Date: 20201103
  Serious: Yes (Disabling)
  Sender: FDA-Public Use
  Company Number: CA-AMGEN-CANSP2020122215

PATIENT
  Age: 82 Year
  Sex: Female
  Weight: 49 kg

DRUGS (6)
  1. BETADERM [Concomitant]
     Active Substance: BETAMETHASONE VALERATE
  2. PROLIA [Suspect]
     Active Substance: DENOSUMAB
     Indication: OSTEOPOROSIS
     Dosage: 1 MILLILITER, Q6MO
     Route: 058
  3. AMLODIPINE [Concomitant]
     Active Substance: AMLODIPINE BESYLATE
  4. CANDESARTAN. [Concomitant]
     Active Substance: CANDESARTAN
  5. VAGIFEM [Concomitant]
     Active Substance: ESTRADIOL
  6. BISOPROLOL [Concomitant]
     Active Substance: BISOPROLOL

REACTIONS (3)
  - Compression fracture [Unknown]
  - Wrist fracture [Unknown]
  - Pathological fracture [Unknown]
